FAERS Safety Report 24898098 (Version 2)
Quarter: 2025Q1

REPORT INFORMATION
  Report Type: Spontaneous
  Country: JP (occurrence: JP)
  Receive Date: 20250129
  Receipt Date: 20250313
  Transmission Date: 20250408
  Serious: Yes (Hospitalization)
  Sender: ROCHE
  Company Number: JP-CHUGAI-2025002139

PATIENT
  Age: 7 Decade
  Sex: Male
  Weight: 65 kg

DRUGS (6)
  1. ENSPRYNG [Suspect]
     Active Substance: SATRALIZUMAB-MWGE
     Indication: Neuromyelitis optica spectrum disorder
     Dosage: 120 MILLIGRAM, ONCE/4WEEKS
     Route: 050
     Dates: start: 20240716
  2. PREDONINE [Concomitant]
     Active Substance: PREDNISOLONE
     Dates: start: 20240331
  3. ROSUVASTATIN CALCIUM [Concomitant]
     Active Substance: ROSUVASTATIN CALCIUM
  4. TENELIGLIPTIN [Concomitant]
     Active Substance: TENELIGLIPTIN
  5. TEGRETOL [Concomitant]
     Active Substance: CARBAMAZEPINE
     Dates: start: 20240620
  6. PREGABALIN [Concomitant]
     Active Substance: PREGABALIN
     Dates: start: 20240606

REACTIONS (1)
  - Pneumonia bacterial [Recovered/Resolved]

NARRATIVE: CASE EVENT DATE: 20250101
